FAERS Safety Report 20013225 (Version 1)
Quarter: 2021Q4

REPORT INFORMATION
  Report Type: Report from Study
  Country: US (occurrence: US)
  Receive Date: 20211029
  Receipt Date: 20211029
  Transmission Date: 20220304
  Serious: Yes (Other)
  Sender: FDA-Public Use
  Company Number: US-BAYER-2021A234231

PATIENT
  Age: 93 Year

DRUGS (1)
  1. STIVARGA [Suspect]
     Active Substance: REGORAFENIB
     Dosage: DAILY DOSE 80 MG
     Route: 048
     Dates: start: 20210308

REACTIONS (2)
  - Full blood count abnormal [Unknown]
  - Off label use [None]

NARRATIVE: CASE EVENT DATE: 20210308
